FAERS Safety Report 6406128-9 (Version None)
Quarter: 2009Q4

REPORT INFORMATION
  Report Type: 
  Country: None (occurrence: None)
  Receive Date: 20091014
  Receipt Date: 20090930
  Transmission Date: 20100525
  Serious: Yes (Death)
  Sender: FDA-Public Use
  Company Number: 2009AC000083

PATIENT
  Age: 89 Year
  Sex: Female

DRUGS (20)
  1. DIGOXIN [Suspect]
     Indication: CARDIAC DISORDER
     Dosage: 0.125 MG; QD; PO
     Route: 048
     Dates: start: 20070201
  2. METOPROLOL [Concomitant]
  3. CISINOPRIL [Concomitant]
  4. ASPIRIN [Concomitant]
  5. DILTIAZEM [Concomitant]
  6. LASIX [Concomitant]
  7. WARFARIN SODIUM [Concomitant]
  8. SIMVASTATIN [Concomitant]
  9. OXYBUTYNIN CHLORIDE [Concomitant]
  10. NEXIUM [Concomitant]
  11. VESICARE [Concomitant]
  12. ENABLEX [Concomitant]
  13. LEVOTHYROXINE SODIUM [Concomitant]
  14. AMIODARONE [Concomitant]
  15. LOVENOX [Concomitant]
  16. ADVAIR DISKUS 100/50 [Concomitant]
  17. ALBUTEROL [Concomitant]
  18. OMEPRAZOLE [Concomitant]
  19. GRANULEX [Concomitant]
  20. AMOXICILLIN [Concomitant]

REACTIONS (22)
  - ACUTE MYOCARDIAL INFARCTION [None]
  - ANAEMIA [None]
  - ANHEDONIA [None]
  - ATRIAL FIBRILLATION [None]
  - CEREBROVASCULAR ACCIDENT [None]
  - CHEST PAIN [None]
  - CYSTOCELE [None]
  - DEPRESSION [None]
  - DYSPNOEA [None]
  - ECONOMIC PROBLEM [None]
  - EMOTIONAL DISTRESS [None]
  - ENURESIS [None]
  - HEART RATE ABNORMAL [None]
  - HYPERLIPIDAEMIA [None]
  - HYPOTHYROIDISM [None]
  - INSOMNIA [None]
  - MULTIPLE INJURIES [None]
  - PAIN [None]
  - RHEUMATOID ARTHRITIS [None]
  - STRESS URINARY INCONTINENCE [None]
  - URGE INCONTINENCE [None]
  - URINARY TRACT INFECTION [None]
